FAERS Safety Report 14031920 (Version 1)
Quarter: 2017Q4

REPORT INFORMATION
  Report Type: Spontaneous
  Country: US (occurrence: US)
  Receive Date: 20171002
  Receipt Date: 20171002
  Transmission Date: 20180321
  Serious: No
  Sender: FDA-Public Use
  Company Number: US-GALDERMA-US17006109

PATIENT
  Age: 12 Year
  Sex: Female

DRUGS (5)
  1. ALLERGY SHOTS [Concomitant]
     Active Substance: UNSPECIFIED INGREDIENT
     Indication: MULTIPLE ALLERGIES
  2. ZYRTEC [Concomitant]
     Active Substance: CETIRIZINE HYDROCHLORIDE
  3. MULTIVITAMIN [Concomitant]
     Active Substance: VITAMINS
  4. METROLOTION [Suspect]
     Active Substance: METRONIDAZOLE
     Indication: RASH
     Dosage: 0.75%
     Route: 061
     Dates: start: 201704, end: 201708
  5. FLUORIDE [Concomitant]
     Active Substance: SODIUM FLUORIDE

REACTIONS (3)
  - Product use in unapproved indication [Unknown]
  - Drug administered to patient of inappropriate age [Recovered/Resolved]
  - Rash [Not Recovered/Not Resolved]
